FAERS Safety Report 8801951 (Version 2)
Quarter: 2015Q2

REPORT INFORMATION
  Report Type: Report from Study
  Country: US (occurrence: US)
  Receive Date: 20120921
  Receipt Date: 20150623
  Transmission Date: 20150821
  Serious: Yes (Death, Other)
  Sender: FDA-Public Use
  Company Number: US-ROCHE-1093292

PATIENT
  Sex: Male

DRUGS (27)
  1. RITUXAN [Suspect]
     Active Substance: RITUXIMAB
     Indication: LYMPHOMA
     Route: 042
  2. RITUXAN [Suspect]
     Active Substance: RITUXIMAB
     Indication: LYMPHOCYTIC LEUKAEMIA
     Route: 042
  3. NEUPOGEN [Concomitant]
     Active Substance: FILGRASTIM
     Route: 058
  4. DECADRON [Concomitant]
     Active Substance: DEXAMETHASONE
     Route: 065
  5. MANNITOL. [Concomitant]
     Active Substance: MANNITOL
     Route: 042
  6. FLOMAX (UNITED STATES) [Concomitant]
  7. ZANTAC [Concomitant]
     Active Substance: RANITIDINE HYDROCHLORIDE
     Route: 065
  8. VP-16 [Concomitant]
     Active Substance: ETOPOSIDE
     Route: 065
  9. VP-16 [Concomitant]
     Active Substance: ETOPOSIDE
     Route: 065
  10. ALOXI [Concomitant]
     Active Substance: PALONOSETRON HYDROCHLORIDE
     Route: 065
  11. LASIX [Concomitant]
     Active Substance: FUROSEMIDE
  12. VINCRISTINE [Concomitant]
     Active Substance: VINCRISTINE
     Route: 042
  13. CYTOXAN [Concomitant]
     Active Substance: CYCLOPHOSPHAMIDE
     Route: 042
  14. VYTORIN [Concomitant]
     Active Substance: EZETIMIBE\SIMVASTATIN
  15. ADRIAMYCIN [Concomitant]
     Active Substance: DOXORUBICIN HYDROCHLORIDE
     Route: 042
  16. TYLENOL [Concomitant]
     Active Substance: ACETAMINOPHEN
     Route: 048
  17. PLAVIX [Concomitant]
     Active Substance: CLOPIDOGREL BISULFATE
  18. ASPIRIN. [Concomitant]
     Active Substance: ASPIRIN
  19. NIASPAN [Concomitant]
     Active Substance: NIACIN
  20. AVASTIN [Suspect]
     Active Substance: BEVACIZUMAB
     Indication: LYMPHOCYTIC LEUKAEMIA
     Route: 042
  21. DECADRON [Concomitant]
     Active Substance: DEXAMETHASONE
     Route: 065
  22. BENADRYL [Concomitant]
     Active Substance: DIPHENHYDRAMINE HYDROCHLORIDE
     Route: 065
  23. SOTALOL. [Concomitant]
     Active Substance: SOTALOL
  24. DECADRON [Concomitant]
     Active Substance: DEXAMETHASONE
     Route: 065
  25. GLYBURIDE. [Concomitant]
     Active Substance: GLYBURIDE
  26. AVASTIN [Suspect]
     Active Substance: BEVACIZUMAB
     Indication: LYMPHOMA
  27. CISPLATIN. [Concomitant]
     Active Substance: CISPLATIN
     Route: 065

REACTIONS (24)
  - Vomiting [Unknown]
  - Staphylococcal sepsis [Unknown]
  - Oedema peripheral [Unknown]
  - Disease progression [Unknown]
  - Dyspnoea [Unknown]
  - Cytopenia [Unknown]
  - Death [Fatal]
  - Arthralgia [Unknown]
  - Wound [Unknown]
  - Nausea [Unknown]
  - Decreased appetite [Unknown]
  - Back pain [Not Recovered/Not Resolved]
  - Pain in extremity [Unknown]
  - Breast pain [Unknown]
  - Constipation [Unknown]
  - Malaise [Unknown]
  - Rales [Unknown]
  - Myalgia [Unknown]
  - Fatigue [Unknown]
  - Pleuritic pain [Unknown]
  - Tenderness [Unknown]
  - Anxiety [Unknown]
  - Tachycardia [Unknown]
  - Off label use [Unknown]
